FAERS Safety Report 6345548-8 (Version None)
Quarter: 2009Q3

REPORT INFORMATION
  Report Type: 
  Country: None (occurrence: None)
  Receive Date: 20090909
  Receipt Date: 20090827
  Transmission Date: 20100115
  Serious: Yes (Other)
  Sender: FDA-Public Use
  Company Number: TH-PFIZER INC-2009261506

PATIENT

DRUGS (1)
  1. SUNITINIB MALATE [Suspect]

REACTIONS (5)
  - HYPOTHYROIDISM [None]
  - PLEURAL EFFUSION [None]
  - PROTEINURIA [None]
  - RENAL FAILURE [None]
  - SWELLING [None]
